FAERS Safety Report 14694555 (Version 7)
Quarter: 2018Q2

REPORT INFORMATION
  Report Type: Spontaneous
  Country: ES (occurrence: ES)
  Receive Date: 20180329
  Receipt Date: 20180614
  Transmission Date: 20180711
  Serious: Yes (Life-Threatening, Hospitalization, Other)
  Sender: FDA-Public Use
  Company Number: ES-UCBSA-2018012952

PATIENT
  Age: 74 Year
  Sex: Male

DRUGS (10)
  1. LACOSAMIDE. [Suspect]
     Active Substance: LACOSAMIDE
     Indication: OFF LABEL USE
  2. TRAMADOL. [Concomitant]
     Active Substance: TRAMADOL
     Indication: ANALGESIC THERAPY
     Dosage: UNKNOWN DOSE
  3. LACOSAMIDE. [Suspect]
     Active Substance: LACOSAMIDE
     Indication: TRIGEMINAL NEURALGIA
     Dosage: 100 MG, 2X/DAY (BID)
     Route: 042
  4. ESLICARBAZEPINE [Suspect]
     Active Substance: ESLICARBAZEPINE
     Indication: TRIGEMINAL NEURALGIA
     Dosage: 400 MG, ONCE DAILY (QD), SINGLE NIGHT DOSE
  5. ENALAPRIL [Concomitant]
     Active Substance: ENALAPRIL
     Indication: PRODUCT USED FOR UNKNOWN INDICATION
     Dosage: 5 MG, 2X/DAY (BID)
  6. PRIMPERAN [Concomitant]
     Active Substance: METOCLOPRAMIDE HYDROCHLORIDE
     Indication: ANALGESIC THERAPY
     Dosage: UNKNOWN DOSE
  7. CARBAMAZEPINE. [Suspect]
     Active Substance: CARBAMAZEPINE
     Indication: TRIGEMINAL NEURALGIA
     Dosage: 200 MG/12 H
  8. METAMIZOLE SODIUM [Concomitant]
     Active Substance: METAMIZOLE SODIUM
     Indication: ANALGESIC THERAPY
     Dosage: UNKNOWN DOSE
  9. CARBAMAZEPINE. [Suspect]
     Active Substance: CARBAMAZEPINE
     Dosage: ADJUSTING THE TREATMENT TO A DESCENDING REGIME
     Dates: end: 20170607
  10. CARBAMAZEPINA NORMON [Suspect]
     Active Substance: CARBAMAZEPINE
     Indication: TRIGEMINAL NEURALGIA
     Dosage: 200 MG/DAY
     Dates: end: 2017

REACTIONS (5)
  - Atrioventricular block complete [Unknown]
  - Cardio-respiratory arrest [Unknown]
  - Bradycardia [None]
  - Drug intolerance [Unknown]
  - Off label use [Unknown]

NARRATIVE: CASE EVENT DATE: 20170612
